FAERS Safety Report 5318674-X (Version None)
Quarter: 2007Q2

REPORT INFORMATION
  Report Type: 
  Country: None (occurrence: None)
  Receive Date: 20070508
  Receipt Date: 20070502
  Transmission Date: 20071010
  Serious: Yes (Death)
  Sender: FDA-Public Use
  Company Number: FR-SANOFI-SYNTHELABO-F01200700570

PATIENT
  Sex: Male
  Weight: 69.5 kg

DRUGS (8)
  1. EMEND [Concomitant]
     Indication: PROPHYLAXIS OF NAUSEA AND VOMITING
     Dates: start: 20050304, end: 20050301
  2. ATHYMIL [Concomitant]
     Indication: DEPRESSION
     Dosage: 60 MG
     Route: 048
     Dates: start: 20050221, end: 20050318
  3. UMULINE [Concomitant]
     Indication: DIABETES MELLITUS
     Dosage: 48 UNK
     Route: 058
     Dates: end: 20050318
  4. HUMALOG [Concomitant]
     Indication: DIABETES MELLITUS
     Dosage: 22 UNK
     Route: 058
     Dates: end: 20050318
  5. FLUOROURACIL [Suspect]
     Dosage: 760 MG BOLUS FOLLOWED BY 2300 MG INFUSION
     Route: 041
     Dates: start: 20050302, end: 20050303
  6. LEUCOVORIN CALCIUM [Suspect]
     Dosage: 380 MG
     Route: 041
     Dates: start: 20050302, end: 20050302
  7. IRINOTECAN HCL [Suspect]
     Dosage: 340 MG
     Route: 041
     Dates: start: 20050302, end: 20050302
  8. OXALIPLATIN [Suspect]
     Indication: PANCREATIC CARCINOMA METASTATIC
     Dosage: 162 MG
     Route: 041
     Dates: start: 20050302, end: 20050302

REACTIONS (1)
  - SUDDEN DEATH [None]
